FAERS Safety Report 4853457-6 (Version None)
Quarter: 2005Q4

REPORT INFORMATION
  Report Type: 
  Country: None (occurrence: None)
  Receive Date: 20051214
  Receipt Date: 20050814
  Transmission Date: 20060501
  Serious: Yes (Other)
  Sender: FDA-Public Use
  Company Number: PHHO2005US12959

PATIENT
  Age: 59 Year
  Sex: Female

DRUGS (2)
  1. ZOLEDRONATE [Suspect]
     Indication: METASTASES TO BONE
     Dosage: 4 MG EVEY 6 MONTHS
     Dates: start: 20030101
  2. FEMARA [Concomitant]
     Indication: BREAST CANCER
     Dosage: 2.5 MG, QD
     Route: 048
     Dates: start: 20020101

REACTIONS (2)
  - GINGIVAL EROSION [None]
  - OSTEOLYSIS [None]
